FAERS Safety Report 11319356 (Version 1)
Quarter: 2015Q3

REPORT INFORMATION
  Report Type: Spontaneous
  Country: US (occurrence: US)
  Receive Date: 20150729
  Receipt Date: 20150729
  Transmission Date: 20151125
  Serious: Yes (Other)
  Sender: FDA-Public Use
  Company Number: US-ACCORD-032552

PATIENT
  Age: 21 Month
  Sex: Male

DRUGS (5)
  1. ETOPOSIDE. [Suspect]
     Active Substance: ETOPOSIDE
     Indication: MEDULLOBLASTOMA
     Dosage: LOW-DOSE ORAL, 4-WEEK CYCLES.?CYCLOPHOSPHAMIDE ALTERNATING WITH ETOPOSIDE
     Route: 048
  2. VINCRISTINE [Suspect]
     Active Substance: VINCRISTINE
     Indication: MEDULLOBLASTOMA
  3. CISPLATIN. [Suspect]
     Active Substance: CISPLATIN
     Indication: MEDULLOBLASTOMA
  4. CYCLOPHOSPHAMIDE/CYCLOPHOSPHAMIDE MONOHYDRATE [Suspect]
     Active Substance: CYCLOPHOSPHAMIDE
     Indication: MEDULLOBLASTOMA
     Dosage: LOW-DOSE ORAL, 4-WEEK CYCLES.
     Route: 048
  5. METHOTREXATE [Suspect]
     Active Substance: METHOTREXATE
     Indication: MEDULLOBLASTOMA
     Dosage: HIGH-DOSE METHOTREXATE (5 G/M2 PER DOSE), ALSO RECEIVED INTRAVENTRICULAR METHOTREXATE.?4-WEEK CYCLE

REACTIONS (6)
  - Leukoencephalopathy [Recovering/Resolving]
  - Thrombocytopenia [Unknown]
  - Sepsis [Unknown]
  - Toxicity to various agents [Unknown]
  - Off label use [Unknown]
  - Bone marrow failure [Unknown]
